FAERS Safety Report 9670493 (Version 3)
Quarter: 2013Q4

REPORT INFORMATION
  Report Type: Spontaneous
  Country: IN (occurrence: IN)
  Receive Date: 20131106
  Receipt Date: 20131111
  Transmission Date: 20140711
  Serious: Yes (Hospitalization)
  Sender: FDA-Public Use
  Company Number: IN-MERCK-1311IND000826

PATIENT
  Age: 54 Year
  Sex: 0

DRUGS (1)
  1. JANUVIA [Suspect]
     Dosage: UNK, FREQUENCY- 1
     Route: 048
     Dates: end: 2013

REACTIONS (1)
  - Dyspnoea [Unknown]
